FAERS Safety Report 9111281 (Version 1)
Quarter: 2013Q1

REPORT INFORMATION
  Report Type: Spontaneous
  Country: US (occurrence: US)
  Receive Date: 20130219
  Receipt Date: 20130219
  Transmission Date: 20140127
  Serious: No
  Sender: FDA-Public Use
  Company Number: US-BRISTOL-MYERS SQUIBB COMPANY-16564528

PATIENT
  Age: 63 Year
  Sex: Female
  Weight: 78.91 kg

DRUGS (2)
  1. ABATACEPT SUBQ INJECTION 125MG/ML [Suspect]
     Indication: RHEUMATOID ARTHRITIS
     Dosage: LAST SELF INJECTION: 26APR2012
     Route: 058
  2. PLAQUENIL [Concomitant]

REACTIONS (3)
  - Pyrexia [Unknown]
  - Fatigue [Unknown]
  - Malaise [Unknown]
